FAERS Safety Report 17787348 (Version 1)
Quarter: 2020Q2

REPORT INFORMATION
  Report Type: Spontaneous
  Country: US (occurrence: US)
  Receive Date: 20200514
  Receipt Date: 20200514
  Transmission Date: 20200714
  Serious: No
  Sender: FDA-Public Use
  Company Number: US-ASTRAZENECA-2020SE62126

PATIENT
  Sex: Male
  Weight: 85.7 kg

DRUGS (1)
  1. FASENRA [Suspect]
     Active Substance: BENRALIZUMAB
     Indication: ASTHMA
     Dosage: 30MG/ML EVERY THREE MONTHS
     Route: 058

REACTIONS (3)
  - Peripheral swelling [Unknown]
  - Osteoarthritis [Unknown]
  - Joint swelling [Unknown]
